FAERS Safety Report 9501973 (Version 1)
Quarter: 2013Q3

REPORT INFORMATION
  Report Type: Spontaneous
  Country: US (occurrence: US)
  Receive Date: 20130905
  Receipt Date: 20130905
  Transmission Date: 20140515
  Serious: Yes (Hospitalization, Other)
  Sender: FDA-Public Use
  Company Number: US-GILEAD-2013-0082509

PATIENT
  Age: 46 Year
  Sex: Female

DRUGS (3)
  1. LETAIRIS [Suspect]
     Indication: PRODUCT USED FOR UNKNOWN INDICATION
     Dosage: 10 MG, QD
     Route: 048
     Dates: start: 20110912
  2. TYVASO [Concomitant]
  3. REVATIO [Concomitant]

REACTIONS (4)
  - Device occlusion [Unknown]
  - Pulmonary thrombosis [Unknown]
  - Oedema [Unknown]
  - Fluid retention [Unknown]
